FAERS Safety Report 20542929 (Version 1)
Quarter: 2022Q1

REPORT INFORMATION
  Report Type: Spontaneous
  Country: US (occurrence: US)
  Receive Date: 20220302
  Receipt Date: 20220302
  Transmission Date: 20220424
  Serious: No
  Sender: FDA-Public Use
  Company Number: US-PERRIGO-21US009712

PATIENT
  Age: 71 Year
  Sex: Male

DRUGS (1)
  1. SCOPOLAMINE [Suspect]
     Active Substance: SCOPOLAMINE
     Indication: Product used for unknown indication
     Dosage: UNKNOWN, UNKNOWN
     Route: 062
     Dates: start: 202107

REACTIONS (3)
  - Application site scar [Unknown]
  - Application site pain [Unknown]
  - Application site burn [Unknown]

NARRATIVE: CASE EVENT DATE: 20210701
